FAERS Safety Report 9134930 (Version 1)
Quarter: 2013Q1

REPORT INFORMATION
  Report Type: Spontaneous
  Country: US (occurrence: US)
  Receive Date: 20130304
  Receipt Date: 20130304
  Transmission Date: 20140127
  Serious: No
  Sender: FDA-Public Use
  Company Number: US-ENDO PHARMACEUTICALS INC.-ENDC20110018

PATIENT
  Sex: Male

DRUGS (2)
  1. ENDOCET [Suspect]
     Indication: ABDOMINAL PAIN
     Dosage: 5/325 MG
     Route: 048
  2. FENTANYL PATCH [Concomitant]
     Indication: PAIN
     Dosage: 50 MCG

REACTIONS (1)
  - Dysuria [Not Recovered/Not Resolved]
